FAERS Safety Report 7213955-7 (Version None)
Quarter: 2011Q1

REPORT INFORMATION
  Report Type: 
  Country: None (occurrence: None)
  Receive Date: 20110106
  Receipt Date: 20101109
  Transmission Date: 20110831
  Serious: Yes (Hospitalization)
  Sender: FDA-Public Use
  Company Number: FR-MERCK-1011FRA00045

PATIENT
  Age: 49 Year
  Sex: Male

DRUGS (6)
  1. ISENTRESS [Suspect]
     Indication: HIV INFECTION
     Route: 048
     Dates: start: 20090511
  2. INDAPAMIDE AND PERINDOPRIL ARGININE [Suspect]
     Indication: HYPERTENSION
     Route: 048
  3. PINAVERIUM BROMIDE [Suspect]
     Route: 048
     Dates: start: 20090101
  4. TRIMEBUTINE [Suspect]
     Indication: DIZZINESS
     Route: 048
     Dates: start: 20100225
  5. EMTRICITABINE AND TENOFOVIR DISOPROXIL FUMARATE [Suspect]
     Indication: HIV INFECTION
     Route: 048
     Dates: start: 20080101
  6. COLCHICINE [Suspect]
     Indication: HYPERURICAEMIA
     Route: 048
     Dates: start: 20090101, end: 20100908

REACTIONS (1)
  - PANCREATITIS ACUTE [None]
